FAERS Safety Report 7333202-5 (Version None)
Quarter: 2011Q1

REPORT INFORMATION
  Report Type: 
  Country: None (occurrence: None)
  Receive Date: 20110304
  Receipt Date: 20110228
  Transmission Date: 20110831
  Serious: Yes (Hospitalization, Other)
  Sender: FDA-Public Use
  Company Number: US-GENZYME-CAMP-1001133

PATIENT
  Sex: Male

DRUGS (3)
  1. CAMPATH [Suspect]
     Dosage: 20 MG, 2X/W
     Route: 058
     Dates: start: 20100101
  2. CAMPATH [Suspect]
     Indication: CHRONIC LYMPHOCYTIC LEUKAEMIA
     Dosage: UNK
     Route: 065
     Dates: start: 20090101
  3. CAMPATH [Suspect]
     Dosage: 30 MG, 3X/W ON M, W, F
     Route: 058

REACTIONS (4)
  - ABASIA [None]
  - RED BLOOD CELL COUNT DECREASED [None]
  - FATIGUE [None]
  - SPLENOMEGALY [None]
